FAERS Safety Report 5216429-8 (Version None)
Quarter: 2007Q1

REPORT INFORMATION
  Report Type: 
  Country: None (occurrence: None)
  Receive Date: 20070118
  Receipt Date: 20070111
  Transmission Date: 20070707
  Serious: Yes (Other)
  Sender: FDA-Public Use
  Company Number: 234905

PATIENT
  Age: 79 Year
  Sex: Female
  Weight: 76.6 kg

DRUGS (2)
  1. LUCENTIS [Suspect]
     Indication: MACULAR DEGENERATION
     Dosage: INTRAVITREAL
     Dates: start: 20061224
  2. COUMADIN [Concomitant]

REACTIONS (3)
  - BODY TEMPERATURE INCREASED [None]
  - URTICARIA [None]
  - WHITE BLOOD CELL COUNT INCREASED [None]
